FAERS Safety Report 6425780-5 (Version None)
Quarter: 2009Q4

REPORT INFORMATION
  Report Type: 
  Country: None (occurrence: None)
  Receive Date: 20091103
  Receipt Date: 20091027
  Transmission Date: 20100525
  Serious: Yes (Other)
  Sender: FDA-Public Use
  Company Number: US-MERCK-0910USA03551

PATIENT
  Age: 23 Year
  Sex: Female

DRUGS (3)
  1. SINGULAIR [Suspect]
     Indication: HYPERSENSITIVITY
     Route: 048
  2. ALLEGRA D 24 HOUR [Concomitant]
     Route: 065
  3. NASONEX [Concomitant]
     Route: 065

REACTIONS (1)
  - HOMICIDAL IDEATION [None]
